FAERS Safety Report 10712637 (Version 3)
Quarter: 2015Q1

REPORT INFORMATION
  Report Type: Spontaneous
  Country: US (occurrence: US)
  Receive Date: 20150115
  Receipt Date: 20150320
  Transmission Date: 20150721
  Serious: Yes (Hospitalization)
  Sender: FDA-Public Use
  Company Number: US-BIOGENIDEC-2015BI001697

PATIENT
  Age: 70 Year
  Sex: Female

DRUGS (1)
  1. TECFIDERA [Suspect]
     Active Substance: DIMETHYL FUMARATE
     Indication: MULTIPLE SCLEROSIS
     Route: 048
     Dates: start: 20130812

REACTIONS (3)
  - Gastric ulcer [Recovered/Resolved with Sequelae]
  - Ulcer haemorrhage [Recovered/Resolved with Sequelae]
  - Stress [Not Recovered/Not Resolved]

NARRATIVE: CASE EVENT DATE: 201412
